FAERS Safety Report 22264164 (Version 1)
Quarter: 2023Q2

REPORT INFORMATION
  Report Type: Spontaneous
  Country: JP (occurrence: JP)
  Receive Date: 20230428
  Receipt Date: 20230428
  Transmission Date: 20230722
  Serious: Yes (Other)
  Sender: FDA-Public Use
  Company Number: JP-GILEAD-2017-0294880

PATIENT
  Age: 63 Year
  Sex: Female

DRUGS (12)
  1. HARVONI [Suspect]
     Active Substance: LEDIPASVIR\SOFOSBUVIR
     Indication: Chronic hepatitis C
     Dosage: UNK
     Route: 065
     Dates: start: 20170508, end: 20170731
  2. ASUNAPREVIR [Suspect]
     Active Substance: ASUNAPREVIR
     Indication: Chronic hepatitis C
     Dosage: UNK
     Route: 065
     Dates: start: 20160324, end: 20160908
  3. DACLATASVIR [Suspect]
     Active Substance: DACLATASVIR
     Indication: Chronic hepatitis C
     Dosage: UNK
     Route: 065
     Dates: start: 20160324, end: 20160908
  4. ASUNAPREVIR\BECLABUVIR HYDROCHLORIDE\DACLATASVIR DIHYDROCHLORIDE [Suspect]
     Active Substance: ASUNAPREVIR\BECLABUVIR HYDROCHLORIDE\DACLATASVIR DIHYDROCHLORIDE
     Indication: Chronic hepatitis C
     Dosage: UNK
     Route: 065
     Dates: start: 20170508, end: 20170713
  5. ALFACALCIDOL [Concomitant]
     Active Substance: ALFACALCIDOL
  6. CINACALCET HYDROCHLORIDE [Concomitant]
     Active Substance: CINACALCET HYDROCHLORIDE
  7. BIXALOMER [Concomitant]
     Active Substance: BIXALOMER
  8. KAYEXALATE [Concomitant]
     Active Substance: SODIUM POLYSTYRENE SULFONATE
  9. VITAMEDIN [CYANOCOBALAMIN;PYRIDOXINE HYDROCHLORIDE;THIAMINE HYDROCHLOR [Concomitant]
  10. MOSAPRIDE [Concomitant]
     Active Substance: MOSAPRIDE
  11. CARDAN [Concomitant]
  12. LANSOPRAZOLE [Concomitant]
     Active Substance: LANSOPRAZOLE

REACTIONS (2)
  - Hepatitis C [Unknown]
  - Drug ineffective [Unknown]
